FAERS Safety Report 4567505-4 (Version None)
Quarter: 2005Q1

REPORT INFORMATION
  Report Type: 
  Country: None (occurrence: None)
  Receive Date: 20050201
  Receipt Date: 20041122
  Transmission Date: 20050727
  Serious: Yes (Life-Threatening, Hospitalization, Disabling)
  Sender: FDA-Public Use
  Company Number: US-MERCK-0411USA03556

PATIENT
  Age: 72 Year
  Sex: Female

DRUGS (9)
  1. VIOXX [Suspect]
     Indication: ARTHRITIS
     Route: 048
     Dates: end: 20041003
  2. ZETIA [Concomitant]
     Route: 065
  3. LISINOPRIL [Concomitant]
     Route: 065
  4. LASIX [Concomitant]
     Route: 065
  5. BLOOD THINNER (UNSPECIFIED) [Concomitant]
     Route: 065
  6. WARFARIN [Concomitant]
     Route: 065
  7. DIGITEK [Concomitant]
     Route: 065
  8. ASPIRIN [Concomitant]
     Route: 065
  9. [THERAPY UNSPECIFIED] [Concomitant]
     Route: 065

REACTIONS (2)
  - DYSPNOEA [None]
  - LUNG DISORDER [None]
